FAERS Safety Report 8999413 (Version 1)
Quarter: 2013Q1

REPORT INFORMATION
  Report Type: Report from Study
  Country: DE (occurrence: DE)
  Receive Date: 20130103
  Receipt Date: 20130103
  Transmission Date: 20140127
  Serious: Yes (Life-Threatening, Disabling, Other)
  Sender: FDA-Public Use
  Company Number: DE-ROCHE-1074111

PATIENT
  Age: 74 Year
  Sex: Female
  Weight: 51 kg

DRUGS (12)
  1. CAPECITABINE [Suspect]
     Indication: COLORECTAL CANCER METASTATIC
     Dosage: TAKEN TWICE DAILY ON DAYS 1-14 OF CYCLE (21 DAYS)
     Route: 048
     Dates: start: 20120416, end: 20121019
  2. CAPECITABINE [Suspect]
     Dosage: AKEN TWICE DAILY ON DAYS 1-14 OF CYCLE (21 DAYS). LAST DOSE PRIOR TO SAE: 07/OCT/2012
     Route: 048
     Dates: end: 20121019
  3. BEVACIZUMAB [Suspect]
     Indication: COLORECTAL CANCER METASTATIC
     Route: 042
     Dates: start: 20120416
  4. BEVACIZUMAB [Suspect]
     Dosage: LAST DOSE PRIOR TO SAE: 24/SEP/2012
     Route: 042
     Dates: end: 20121019
  5. IRINOTECAN [Suspect]
     Indication: COLORECTAL CANCER METASTATIC
     Route: 042
     Dates: start: 20120416
  6. IRINOTECAN [Suspect]
     Dosage: LAST DOSE PRIOR TO SAE: 24/SEP/2012
     Route: 042
     Dates: end: 20121019
  7. PREDNISOLONE [Concomitant]
     Route: 065
     Dates: start: 20120410
  8. PREDNISOLONE [Concomitant]
     Route: 065
     Dates: start: 201209
  9. PANTOPRAZOLE [Concomitant]
     Route: 065
     Dates: start: 20110716
  10. BISOPROLOL [Concomitant]
     Route: 065
     Dates: start: 201208
  11. FONDAPARINUX SODIUM [Concomitant]
     Route: 058
     Dates: start: 20120530
  12. FONDAPARINUX SODIUM [Concomitant]
     Route: 058

REACTIONS (2)
  - Pulmonary embolism [Unknown]
  - Deep vein thrombosis [Unknown]
